FAERS Safety Report 8529737-X (Version None)
Quarter: 2012Q2

REPORT INFORMATION
  Report Type: 
  Country: None (occurrence: None)
  Receive Date: 20120410
  Receipt Date: 20110720
  Transmission Date: 20120825
  Serious: Yes (Hospitalization, Other)
  Sender: FDA-Public Use
  Company Number: AUR-APL-2011-04424

PATIENT
  Age: 49 Year
  Sex: Female
  Weight: 97.96 kg

DRUGS (6)
  1. LISINOPRIL [Suspect]
     Indication: HYPERTENSION
     Dosage: 20 MG, 1 D, UNKNOWN
     Dates: start: 20080301, end: 20080301
  2. CARTIA XT [Suspect]
     Indication: HYPERTENSION
     Dosage: 180 MG, 1 D, ORAL
     Route: 048
     Dates: start: 20080301, end: 20080301
  3. CARDIRA XL (DOXAZOSIN MESILATE) [Concomitant]
  4. EFFEXOR XR [Suspect]
     Indication: DEPRESSION
     Dosage: 75 MG (75 MG, 1 IN 1 D), ORAL; 150 MG, 1 IN 1 D, ORAL; 225 MG (225 MG, 1 IN 1 D), ORAL
     Route: 048
     Dates: start: 20080101, end: 20080101
  5. EFFEXOR XR [Suspect]
     Indication: DEPRESSION
     Dosage: 75 MG (75 MG, 1 IN 1 D), ORAL; 150 MG, 1 IN 1 D, ORAL; 225 MG (225 MG, 1 IN 1 D), ORAL
     Route: 048
     Dates: start: 20080301, end: 20080301
  6. EFFEXOR XR [Suspect]
     Indication: DEPRESSION
     Dosage: 75 MG (75 MG, 1 IN 1 D), ORAL; 150 MG, 1 IN 1 D, ORAL; 225 MG (225 MG, 1 IN 1 D), ORAL
     Route: 048
     Dates: start: 20080101, end: 20080101

REACTIONS (9)
  - SWELLING FACE [None]
  - DRUG INEFFECTIVE [None]
  - DIZZINESS [None]
  - HYPERTENSION [None]
  - DISTURBANCE IN ATTENTION [None]
  - SOMNOLENCE [None]
  - CHEST PAIN [None]
  - ASTHENIA [None]
  - EYELID OEDEMA [None]
